FAERS Safety Report 5057393-4 (Version None)
Quarter: 2006Q3

REPORT INFORMATION
  Report Type: 
  Country: None (occurrence: None)
  Receive Date: 20060721
  Receipt Date: 20050915
  Transmission Date: 20061208
  Serious: Yes (Other)
  Sender: FDA-Public Use
  Company Number: US-GLAXOSMITHKLINE-A0574706A

PATIENT
  Age: 73 Year
  Sex: Female
  Weight: 115.9 kg

DRUGS (10)
  1. AVANDIA [Suspect]
     Indication: DRUG USE FOR UNKNOWN INDICATION
     Route: 048
  2. POTASSIUM [Concomitant]
     Dosage: 500MG UNKNOWN
     Route: 065
  3. TOPROL-XL [Concomitant]
  4. TIAZAC [Concomitant]
  5. DIOVAN HCT [Concomitant]
  6. LASIX [Concomitant]
  7. ZOCOR [Concomitant]
     Dosage: 20MG AT NIGHT
  8. ASPIRIN [Concomitant]
  9. AMARYL [Concomitant]
     Dosage: 4MG PER DAY
  10. TRAZODONE HCL [Concomitant]
     Dosage: 200MG AT NIGHT

REACTIONS (7)
  - ABDOMINAL DISTENSION [None]
  - CARDIAC FAILURE CONGESTIVE [None]
  - FATIGUE [None]
  - FLUID RETENTION [None]
  - OEDEMA [None]
  - OEDEMA PERIPHERAL [None]
  - WEIGHT INCREASED [None]
